FAERS Safety Report 18179022 (Version 2)
Quarter: 2020Q3

REPORT INFORMATION
  Report Type: Spontaneous
  Country: DE (occurrence: DE)
  Receive Date: 20200821
  Receipt Date: 20200902
  Transmission Date: 20201103
  Serious: Yes (Hospitalization)
  Sender: FDA-Public Use
  Company Number: DE-TEVA-2020-DE-1817342

PATIENT
  Age: 61 Year
  Sex: Female
  Weight: 94 kg

DRUGS (8)
  1. ALLOPURINOL. [Concomitant]
     Active Substance: ALLOPURINOL
  2. METAMIZOLE [Concomitant]
     Active Substance: METAMIZOLE
  3. INSULIN LISPRO [Concomitant]
     Active Substance: INSULIN LISPRO
  4. METOCLOPRAMIDE. [Concomitant]
     Active Substance: METOCLOPRAMIDE
  5. CELECOXIB. [Suspect]
     Active Substance: CELECOXIB
     Dosage: 200 MILLIGRAM DAILY; 1?0?0?0
     Route: 048
  6. DULAGLUTIDE. [Suspect]
     Active Substance: DULAGLUTIDE
     Dosage: 1.5 MILLIGRAM DAILY;
     Route: 058
  7. ACICLOVIR [Concomitant]
     Active Substance: ACYCLOVIR
  8. SULFAMETHOXAZOLE/TRIMETHOPRIM [Concomitant]
     Active Substance: SULFAMETHOXAZOLE\TRIMETHOPRIM

REACTIONS (8)
  - Haematuria [Recovering/Resolving]
  - Inflammation [Recovering/Resolving]
  - Dyspepsia [Recovering/Resolving]
  - Localised infection [Recovering/Resolving]
  - Pain [Recovering/Resolving]
  - Musculoskeletal pain [Recovering/Resolving]
  - Dyspnoea exertional [Recovering/Resolving]
  - Chest pain [Recovering/Resolving]

NARRATIVE: CASE EVENT DATE: 20191213
